FAERS Safety Report 7190017-9 (Version None)
Quarter: 2010Q4

REPORT INFORMATION
  Report Type: 
  Country: None (occurrence: None)
  Receive Date: 20101210
  Receipt Date: 20101201
  Transmission Date: 20110411
  Serious: Yes (Life-Threatening, Hospitalization)
  Sender: FDA-Public Use
  Company Number: 2010MA003881

PATIENT
  Age: 16 Year
  Sex: Female
  Weight: 87.9978 kg

DRUGS (14)
  1. NAPROXEN [Suspect]
     Indication: ARTHRALGIA
     Dosage: 500 MG;BID;PO
     Route: 048
     Dates: end: 20100710
  2. COLACE [Concomitant]
  3. ZANTAC [Concomitant]
  4. LOPRESSOR [Concomitant]
  5. LISINOPRIL [Concomitant]
  6. ADDERALL XR 10 [Concomitant]
  7. HALDL DECANOATE [Concomitant]
  8. LAMICTAL [Concomitant]
  9. ZOLOFT [Concomitant]
  10. LOVASTATIN [Concomitant]
  11. NALTREXONE HYDROCHLORIDE [Concomitant]
  12. NASONEX [Concomitant]
  13. PROAIR HFA [Concomitant]
  14. SENNA LAX [Concomitant]

REACTIONS (18)
  - AGGRESSION [None]
  - ALANINE AMINOTRANSFERASE DECREASED [None]
  - ATTENTION DEFICIT/HYPERACTIVITY DISORDER [None]
  - BIPOLAR I DISORDER [None]
  - BLOOD PRESSURE SYSTOLIC DECREASED [None]
  - BORDERLINE PERSONALITY DISORDER [None]
  - CONSTRICTED AFFECT [None]
  - DYSPHORIA [None]
  - ELECTROCARDIOGRAM T WAVE ABNORMAL [None]
  - FEELING ABNORMAL [None]
  - GASTROINTESTINAL HAEMORRHAGE [None]
  - GRANULOCYTE COUNT INCREASED [None]
  - INTENTIONAL SELF-INJURY [None]
  - IRON DEFICIENCY ANAEMIA [None]
  - JUDGEMENT IMPAIRED [None]
  - PLATELET COUNT DECREASED [None]
  - POST-TRAUMATIC STRESS DISORDER [None]
  - SINUS TACHYCARDIA [None]
